FAERS Safety Report 10683591 (Version 3)
Quarter: 2015Q1

REPORT INFORMATION
  Report Type: Spontaneous
  Country: US (occurrence: US)
  Receive Date: 20141230
  Receipt Date: 20150130
  Transmission Date: 20150720
  Serious: Yes (Hospitalization, Disabling)
  Sender: FDA-Public Use
  Company Number: US-009507513-1204USA03746

PATIENT
  Sex: Male
  Weight: 85.71 kg

DRUGS (1)
  1. PROPECIA [Suspect]
     Active Substance: FINASTERIDE
     Indication: ANDROGENETIC ALOPECIA
     Dosage: 1 MG, QD
     Route: 048
     Dates: start: 1999, end: 2000

REACTIONS (24)
  - Head injury [Not Recovered/Not Resolved]
  - Stress [Unknown]
  - Confusional state [Unknown]
  - Social avoidant behaviour [Unknown]
  - Disturbance in attention [Unknown]
  - Drug ineffective [Unknown]
  - Sexual dysfunction [Not Recovered/Not Resolved]
  - Ejaculation failure [Not Recovered/Not Resolved]
  - Dermatitis [Unknown]
  - Libido decreased [Not Recovered/Not Resolved]
  - Fatigue [Unknown]
  - Sleep disorder [Unknown]
  - Cognitive disorder [Not Recovered/Not Resolved]
  - Weight increased [Unknown]
  - Memory impairment [Unknown]
  - Testicular pain [Unknown]
  - Genital hypoaesthesia [Unknown]
  - Depression [Not Recovered/Not Resolved]
  - Acne [Unknown]
  - Anxiety [Not Recovered/Not Resolved]
  - Erectile dysfunction [Not Recovered/Not Resolved]
  - Insomnia [Unknown]
  - Joint injury [Not Recovered/Not Resolved]
  - Ejaculation disorder [Not Recovered/Not Resolved]

NARRATIVE: CASE EVENT DATE: 199902
